FAERS Safety Report 10854102 (Version 1)
Quarter: 2015Q1

REPORT INFORMATION
  Report Type: Spontaneous
  Country: US (occurrence: US)
  Receive Date: 20150223
  Receipt Date: 20150223
  Transmission Date: 20150721
  Serious: Yes (Hospitalization, Disabling, Other)
  Sender: FDA-Public Use
  Company Number: US-CELGENEUS-163-21880-14045189

PATIENT
  Age: 60 Year
  Sex: Female
  Weight: 55.6 kg

DRUGS (17)
  1. EPOGEN [Concomitant]
     Active Substance: ERYTHROPOIETIN
     Indication: PRODUCT USED FOR UNKNOWN INDICATION
     Route: 065
  2. BLOOD TRANSFUSIONS [Concomitant]
     Active Substance: WHOLE BLOOD
     Route: 041
     Dates: start: 201311, end: 201311
  3. REVLIMID [Suspect]
     Active Substance: LENALIDOMIDE
     Route: 048
     Dates: start: 20120919, end: 20140423
  4. ARANESP [Concomitant]
     Active Substance: DARBEPOETIN ALFA
     Indication: PRODUCT USED FOR UNKNOWN INDICATION
     Route: 065
     Dates: start: 201304
  5. ALLEGRA ALLERGY [Concomitant]
     Active Substance: FEXOFENADINE HYDROCHLORIDE
     Indication: PRODUCT USED FOR UNKNOWN INDICATION
     Route: 065
  6. AZITHROMYCIN [Concomitant]
     Active Substance: AZITHROMYCIN ANHYDROUS
     Indication: PRODUCT USED FOR UNKNOWN INDICATION
     Route: 065
  7. NASONEX [Concomitant]
     Active Substance: MOMETASONE FUROATE
     Indication: PRODUCT USED FOR UNKNOWN INDICATION
     Route: 065
  8. BLOOD TRANSFUSIONS [Concomitant]
     Active Substance: WHOLE BLOOD
     Route: 041
     Dates: start: 201305, end: 201305
  9. BLOOD TRANSFUSIONS [Concomitant]
     Active Substance: WHOLE BLOOD
     Route: 041
     Dates: start: 201403, end: 201403
  10. ARANESP [Concomitant]
     Active Substance: DARBEPOETIN ALFA
     Route: 058
  11. SENSIPAR [Concomitant]
     Active Substance: CINACALCET HYDROCHLORIDE
     Indication: PRODUCT USED FOR UNKNOWN INDICATION
     Route: 065
  12. SYMBICORT [Concomitant]
     Active Substance: BUDESONIDE\FORMOTEROL FUMARATE DIHYDRATE
     Indication: PRODUCT USED FOR UNKNOWN INDICATION
     Dosage: 80-4.5
     Route: 065
  13. BLOOD TRANSFUSIONS [Concomitant]
     Active Substance: WHOLE BLOOD
     Route: 041
     Dates: start: 201309, end: 201309
  14. BLOOD TRANSFUSIONS [Concomitant]
     Active Substance: WHOLE BLOOD
     Indication: FULL BLOOD COUNT DECREASED
     Route: 041
     Dates: start: 20140417
  15. BLOOD TRANSFUSIONS [Concomitant]
     Active Substance: WHOLE BLOOD
     Route: 041
     Dates: start: 201404, end: 201404
  16. REVLIMID [Suspect]
     Active Substance: LENALIDOMIDE
     Route: 048
     Dates: start: 201207
  17. REVLIMID [Suspect]
     Active Substance: LENALIDOMIDE
     Indication: PLASMA CELL MYELOMA
     Route: 048

REACTIONS (2)
  - Cytopenia [Recovering/Resolving]
  - Pneumonia [Recovered/Resolved]

NARRATIVE: CASE EVENT DATE: 20130513
